FAERS Safety Report 9518124 (Version 2)
Quarter: 2013Q3

REPORT INFORMATION
  Report Type: Spontaneous
  Country: US (occurrence: US)
  Receive Date: 20130912
  Receipt Date: 20130919
  Transmission Date: 20140515
  Serious: Yes (Other)
  Sender: FDA-Public Use
  Company Number: US-BAXTER-2013BAX035243

PATIENT
  Age: 53 Year
  Sex: Female

DRUGS (4)
  1. DIANEAL LOW CALCIUM [Suspect]
     Indication: PERITONEAL DIALYSIS
     Route: 033
     Dates: start: 201104
  2. DIANEAL LOW CALCIUM [Suspect]
     Indication: PERITONEAL DIALYSIS
     Route: 033
     Dates: start: 201309
  3. DIANEAL LOW CALCIUM (ULTRABAG) [Suspect]
     Indication: PERITONEAL DIALYSIS
     Route: 033
  4. ACYCLOVIR [Suspect]
     Indication: HERPES ZOSTER
     Dates: start: 20130817, end: 20130819

REACTIONS (4)
  - Herpes zoster [Recovered/Resolved]
  - Drug hypersensitivity [Recovered/Resolved]
  - Hallucination [Recovered/Resolved]
  - Convulsion [Recovered/Resolved]
